FAERS Safety Report 7908854-9 (Version None)
Quarter: 2011Q4

REPORT INFORMATION
  Report Type: 
  Country: None (occurrence: None)
  Receive Date: 20111111
  Receipt Date: 20111028
  Transmission Date: 20120403
  Serious: Yes (Other)
  Sender: FDA-Public Use
  Company Number: US-BAYER-2011-019844

PATIENT
  Age: 17 Year
  Sex: Female
  Weight: 75 kg

DRUGS (7)
  1. YASMIN [Suspect]
     Indication: ACNE
     Dosage: UNK
     Dates: start: 20070101, end: 20100101
  2. YAZ [Suspect]
     Indication: ACNE
     Dosage: UNK
     Dates: start: 20070101, end: 20100101
  3. FLOVENT [Concomitant]
     Dosage: UNK UNK, PRN
  4. DROSPIRENONE AND ETHINYL ESTRADIOL [Suspect]
     Indication: ACNE
     Dosage: UNK
     Dates: start: 20070101, end: 20100101
  5. NSAID'S [Concomitant]
  6. ALBUTEROL [Concomitant]
     Dosage: UNK UNK, PRN
  7. FLUOXETINE HCL [Concomitant]
     Dosage: UNK
     Dates: start: 20070101

REACTIONS (5)
  - CHOLECYSTITIS ACUTE [None]
  - INJURY [None]
  - INTERNAL INJURY [None]
  - CHOLELITHIASIS [None]
  - PAIN [None]
